FAERS Safety Report 24987883 (Version 2)
Quarter: 2025Q1

REPORT INFORMATION
  Report Type: Spontaneous
  Country: US (occurrence: US)
  Receive Date: 20250219
  Receipt Date: 20250312
  Transmission Date: 20250408
  Serious: Yes (Hospitalization)
  Sender: BIOGEN
  Company Number: US-BIOGEN-2025BI01301114

PATIENT
  Sex: Female

DRUGS (10)
  1. TECFIDERA [Suspect]
     Active Substance: DIMETHYL FUMARATE
     Indication: Multiple sclerosis
     Dosage: STARTING DOSE
     Route: 050
     Dates: start: 20151015
  2. TECFIDERA [Suspect]
     Active Substance: DIMETHYL FUMARATE
     Dosage: MAINTENANCE DOSE
     Route: 050
     Dates: end: 20210202
  3. TECFIDERA [Suspect]
     Active Substance: DIMETHYL FUMARATE
     Route: 050
     Dates: start: 20200709, end: 20210317
  4. AMOXIL [Concomitant]
     Active Substance: AMOXICILLIN
     Indication: Infection
     Route: 050
     Dates: start: 20181109
  5. VITAMIN C [Concomitant]
     Active Substance: ASCORBIC ACID
     Indication: Product used for unknown indication
     Route: 050
     Dates: start: 20200420
  6. VITAMIN D3 [Concomitant]
     Active Substance: CHOLECALCIFEROL
     Indication: Product used for unknown indication
     Route: 050
     Dates: start: 20200420
  7. VITAMIN B12 [Concomitant]
     Active Substance: CYANOCOBALAMIN
     Indication: Product used for unknown indication
     Route: 050
     Dates: start: 20200428
  8. FERROUS GLUCONATE [Concomitant]
     Active Substance: FERROUS GLUCONATE
     Indication: Product used for unknown indication
     Route: 050
     Dates: start: 20200501
  9. MELATONIN [Concomitant]
     Active Substance: MELATONIN
     Indication: Product used for unknown indication
     Route: 050
     Dates: start: 20200420
  10. PRILOSEC OTC [Concomitant]
     Active Substance: OMEPRAZOLE MAGNESIUM
     Indication: Product used for unknown indication
     Route: 050
     Dates: start: 20200420, end: 20250115

REACTIONS (1)
  - Bile duct stone [Recovered/Resolved]

NARRATIVE: CASE EVENT DATE: 20190101
